FAERS Safety Report 10214252 (Version 1)
Quarter: 2014Q2

REPORT INFORMATION
  Report Type: Spontaneous
  Country: US (occurrence: US)
  Receive Date: 20140603
  Receipt Date: 20140603
  Transmission Date: 20141212
  Serious: No
  Sender: FDA-Public Use
  Company Number: US-PFIZER INC-2014149268

PATIENT
  Age: 67 Year
  Sex: Female
  Weight: 77.1 kg

DRUGS (3)
  1. NEURONTIN [Suspect]
     Indication: NEURALGIA
     Dosage: 100 MG, 2X/DAY
     Dates: start: 20140528
  2. FENTANYL [Concomitant]
     Indication: PAIN
     Dosage: 15 UG, EVERY 48 HOURS
  3. ROBAXIN [Concomitant]
     Indication: PAIN
     Dosage: 750 MG, DAILY

REACTIONS (5)
  - Dizziness [Recovered/Resolved]
  - Agitation [Recovered/Resolved]
  - Restlessness [Recovered/Resolved]
  - Anxiety [Recovered/Resolved]
  - Panic attack [Recovered/Resolved]
